FAERS Safety Report 15612610 (Version 2)
Quarter: 2024Q3

REPORT INFORMATION
  Report Type: Report from Study
  Country: MX (occurrence: MX)
  Receive Date: 20181113
  Receipt Date: 20240731
  Transmission Date: 20241016
  Serious: Yes (Other)
  Sender: NOVARTIS
  Company Number: PHHY2018MX150720

PATIENT
  Age: 76 Year
  Sex: Female
  Weight: 72 kg

DRUGS (10)
  1. HYDROCHLOROTHIAZIDE\VALSARTAN [Suspect]
     Active Substance: HYDROCHLOROTHIAZIDE\VALSARTAN
     Indication: Hypertension
     Dosage: 1 DOSAGE FORM, QD (160/12.5 MG)
     Route: 048
     Dates: start: 2020
  2. HYDROCHLOROTHIAZIDE\VALSARTAN [Suspect]
     Active Substance: HYDROCHLOROTHIAZIDE\VALSARTAN
     Dosage: 0.5 DF (HYDROCHLOROTHIAZIDE 12.5 MG, VALSARTAN 160 MG), QD
     Route: 048
  3. HYDROCHLOROTHIAZIDE\VALSARTAN [Suspect]
     Active Substance: HYDROCHLOROTHIAZIDE\VALSARTAN
     Dosage: 1 DOSAGE FORM, QD (160/12.5 MG)
     Route: 048
  4. SPIRONOLACTONE [Suspect]
     Active Substance: SPIRONOLACTONE
     Indication: Urinary tract infection
     Dosage: 1 DOSAGE FORM, QD
     Route: 048
     Dates: start: 2023, end: 2023
  5. NAPHAZOLINE HYDROCHLORIDE [Concomitant]
     Active Substance: NAPHAZOLINE HYDROCHLORIDE
     Indication: Eye irritation
     Dosage: 1 DF, Q24H
     Route: 065
  6. ASPIRIN [Concomitant]
     Active Substance: ASPIRIN
     Indication: Ischaemic heart disease prophylaxis
     Dosage: 1 DF, QD (5 YEARS AGO APPROXIMATELY)
     Route: 065
  7. SIG [Concomitant]
     Indication: Prophylaxis
     Dosage: 1 DF, QD (1 YEAR AGO APPROXIMATELY)
     Route: 065
  8. METOPROLOL [Concomitant]
     Active Substance: METOPROLOL
     Indication: Product used for unknown indication
     Dosage: 100 MG
     Route: 065
  9. SINTROM [Concomitant]
     Active Substance: ACENOCOUMAROL
     Indication: Coagulopathy
     Dosage: 0.25 DOSAGE FORM (FROM MON TO FRI)
     Route: 048
     Dates: start: 2023
  10. SINTROM [Concomitant]
     Active Substance: ACENOCOUMAROL
     Dosage: 0.5 DOSAGE FORM (SAT AND SUN)
     Route: 048

REACTIONS (42)
  - Cataract [Recovered/Resolved with Sequelae]
  - Arrhythmia [Unknown]
  - Atrial fibrillation [Unknown]
  - Ventricular tachycardia [Unknown]
  - Ventricular remodelling [Unknown]
  - Mitral valve stenosis [Unknown]
  - Aortic valve incompetence [Unknown]
  - Pulmonary hypertension [Unknown]
  - Pulmonary valve incompetence [Unknown]
  - Vena cava injury [Unknown]
  - Hypothyroidism [Recovering/Resolving]
  - Choking [Recovering/Resolving]
  - Visual impairment [Recovered/Resolved with Sequelae]
  - Ocular hyperaemia [Not Recovered/Not Resolved]
  - Peripheral swelling [Unknown]
  - Blood pressure decreased [Recovering/Resolving]
  - Incorrect dose administered [Unknown]
  - Blood pressure increased [Recovered/Resolved]
  - Heart rate decreased [Recovering/Resolving]
  - Supraventricular extrasystoles [Unknown]
  - Ventricular extrasystoles [Unknown]
  - Atrioventricular block [Unknown]
  - Heart rate increased [Unknown]
  - Global longitudinal strain abnormal [Unknown]
  - Left atrial hypertrophy [Unknown]
  - Aortic valve sclerosis [Unknown]
  - Depression [Unknown]
  - Concomitant disease aggravated [Unknown]
  - Malaise [Unknown]
  - Anxiety [Recovering/Resolving]
  - Insomnia [Unknown]
  - Cardiac disorder [Unknown]
  - Abdominal pain upper [Unknown]
  - Urinary tract infection [Recovering/Resolving]
  - Alopecia [Unknown]
  - Fatigue [Unknown]
  - Dyspnoea [Unknown]
  - Weight loss poor [Unknown]
  - Thyroid hormones increased [Recovering/Resolving]
  - Weight decreased [Unknown]
  - Blood cholesterol increased [Unknown]
  - Product packaging issue [Unknown]

NARRATIVE: CASE EVENT DATE: 20230901
